FAERS Safety Report 11731550 (Version 1)
Quarter: 2015Q4

REPORT INFORMATION
  Report Type: Spontaneous
  Country: US (occurrence: US)
  Receive Date: 20151110
  Receipt Date: 20151110
  Transmission Date: 20160304
  Serious: No
  Sender: FDA-Public Use
  Company Number: US-ELI_LILLY_AND_COMPANY-US201203004907

PATIENT
  Sex: Male

DRUGS (2)
  1. PRIMIDONE. [Concomitant]
     Active Substance: PRIMIDONE
     Indication: PARKINSON^S DISEASE
     Dosage: UNK
     Dates: start: 20120227
  2. FORTEO [Suspect]
     Active Substance: TERIPARATIDE
     Indication: OSTEOPOROSIS
     Dosage: 20 UG, QD
     Dates: start: 20120222

REACTIONS (3)
  - Adverse drug reaction [Unknown]
  - Tremor [Unknown]
  - Injection site pain [Unknown]
